FAERS Safety Report 5633119-8 (Version None)
Quarter: 2008Q1

REPORT INFORMATION
  Report Type: 
  Country: None (occurrence: None)
  Receive Date: 20080215
  Receipt Date: 20070910
  Transmission Date: 20080703
  Serious: Yes (Hospitalization)
  Sender: FDA-Public Use
  Company Number: T08-USA-00521-01

PATIENT
  Age: 25 Year
  Sex: Female
  Weight: 115 kg

DRUGS (1)
  1. CERVIDIL [Suspect]
     Indication: LABOUR INDUCTION
     Dates: start: 20061004, end: 20061004

REACTIONS (5)
  - CAESAREAN SECTION [None]
  - DRUG EXPOSURE DURING PREGNANCY [None]
  - FOETAL HEART RATE DECELERATION [None]
  - MATERNAL CONDITION AFFECTING FOETUS [None]
  - TACHYCARDIA FOETAL [None]
